FAERS Safety Report 5354756-4 (Version None)
Quarter: 2007Q2

REPORT INFORMATION
  Report Type: 
  Country: None (occurrence: None)
  Receive Date: 20070612
  Receipt Date: 20070531
  Transmission Date: 20071010
  Serious: Yes (Hospitalization, Other)
  Sender: FDA-Public Use
  Company Number: US-PFIZER INC-2007027537

PATIENT
  Sex: Male
  Weight: 97.5 kg

DRUGS (2)
  1. GEODON [Suspect]
     Indication: BIPOLAR DISORDER
  2. XANAX [Concomitant]

REACTIONS (7)
  - ANXIETY [None]
  - ATRIAL FIBRILLATION [None]
  - BIPOLAR DISORDER [None]
  - CARDIAC ARREST [None]
  - CONCUSSION [None]
  - NAUSEA [None]
  - SYNCOPE [None]
